FAERS Safety Report 21968449 (Version 2)
Quarter: 2023Q1

REPORT INFORMATION
  Report Type: Spontaneous
  Country: JP (occurrence: JP)
  Receive Date: 20230208
  Receipt Date: 20230215
  Transmission Date: 20230418
  Serious: Yes (Hospitalization, Congenital Anomaly, Other)
  Sender: FDA-Public Use
  Company Number: JP-UCBSA-2023005551

PATIENT
  Sex: Male

DRUGS (1)
  1. LEVETIRACETAM [Suspect]
     Active Substance: LEVETIRACETAM
     Indication: Product used for unknown indication
     Dosage: UNK
     Route: 064

REACTIONS (5)
  - Congenital oesophageal stenosis [Unknown]
  - Oesophageal atresia [Unknown]
  - Apgar score low [Unknown]
  - Bartter^s syndrome [Unknown]
  - Maternal exposure during pregnancy [Unknown]
